FAERS Safety Report 9414095 (Version 1)
Quarter: 2013Q3

REPORT INFORMATION
  Report Type: Spontaneous
  Country: CA (occurrence: CA)
  Receive Date: 20130723
  Receipt Date: 20130723
  Transmission Date: 20140515
  Serious: Yes (Death, Hospitalization, Other)
  Sender: FDA-Public Use
  Company Number: CA-CELGENEUS-028-50794-13072591

PATIENT
  Age: 80 Year
  Sex: Male

DRUGS (2)
  1. VIDAZA [Suspect]
     Indication: MYELODYSPLASTIC SYNDROME
     Route: 065
     Dates: start: 20120516
  2. VIDAZA [Suspect]
     Route: 065
     Dates: start: 201306, end: 20130628

REACTIONS (5)
  - Pneumonia [Fatal]
  - Eye disorder [Unknown]
  - Cataract [Unknown]
  - Dyspnoea [Unknown]
  - Pyrexia [Unknown]
